FAERS Safety Report 20601665 (Version 2)
Quarter: 2022Q1

REPORT INFORMATION
  Report Type: Spontaneous
  Country: KR (occurrence: KR)
  Receive Date: 20220316
  Receipt Date: 20220330
  Transmission Date: 20220423
  Serious: Yes (Hospitalization, Disabling)
  Sender: FDA-Public Use
  Company Number: KR-SA-SAC20220314000856

PATIENT
  Sex: Female

DRUGS (1)
  1. TOUJEO [Suspect]
     Active Substance: INSULIN GLARGINE
     Indication: Blood glucose abnormal
     Dosage: 16 U, QD
     Route: 058

REACTIONS (5)
  - Bedridden [Unknown]
  - Asthenia [Unknown]
  - Amnesia [Unknown]
  - Decreased appetite [Unknown]
  - Blood glucose increased [Unknown]
